FAERS Safety Report 5608204-7 (Version None)
Quarter: 2008Q1

REPORT INFORMATION
  Report Type: 
  Country: None (occurrence: None)
  Receive Date: 20080130
  Receipt Date: 20080121
  Transmission Date: 20080703
  Serious: Yes (Disabling, Other)
  Sender: FDA-Public Use
  Company Number: US-ROCHE-384635

PATIENT
  Age: 17 Year
  Sex: Male
  Weight: 46.3 kg

DRUGS (5)
  1. ACCUTANE [Suspect]
     Indication: ACNE
     Route: 048
     Dates: start: 19990929, end: 19991013
  2. ACCUTANE [Suspect]
     Dosage: ALTERNATING DOSE OF 40MG WITH AN UNKNOWN DOSE.
     Route: 048
     Dates: start: 19991013, end: 19991110
  3. ACCUTANE [Suspect]
     Dosage: 11 CAPSULES PER WEEK.
     Route: 048
     Dates: start: 19991110, end: 20000119
  4. ACCUTANE [Suspect]
     Route: 048
     Dates: start: 20000119, end: 20000223
  5. ACCUTANE [Suspect]
     Route: 048
     Dates: start: 20000223, end: 20000926

REACTIONS (12)
  - ACNE [None]
  - ANAEMIA [None]
  - COLITIS [None]
  - COLITIS ULCERATIVE [None]
  - CROHN'S DISEASE [None]
  - DRY SKIN [None]
  - GASTROINTESTINAL DISORDER [None]
  - INFLAMMATORY BOWEL DISEASE [None]
  - INTERNAL INJURY [None]
  - INTESTINAL HAEMORRHAGE [None]
  - LIP EXFOLIATION [None]
  - RECTAL HAEMORRHAGE [None]
